FAERS Safety Report 8255323-5 (Version None)
Quarter: 2012Q1

REPORT INFORMATION
  Report Type: 
  Country: None (occurrence: None)
  Receive Date: 20120322
  Receipt Date: 20111213
  Transmission Date: 20120608
  Serious: Yes (Hospitalization)
  Sender: FDA-Public Use
  Company Number: UTC-012627

PATIENT
  Age: 64 Year
  Sex: Female
  Weight: 53.18 kg

DRUGS (4)
  1. REMODULIN [Suspect]
     Indication: PULMONARY ARTERIAL HYPERTENSION
     Dosage: 25.92 UG/KG (0.018 UG/KG, 1 IN 1 MIN), INTRAVENOUS
     Route: 042
     Dates: start: 20101025
  2. REVATIO [Concomitant]
  3. TYVASO [Suspect]
     Indication: PRODUCT USED FOR UNKNOWN INDICATION
     Dosage: INHALATION
     Route: 055
  4. LETAIRIS [Suspect]
     Indication: PRODUCT USED FOR UNKNOWN INDICATION

REACTIONS (1)
  - PULMONARY ARTERIAL HYPERTENSION [None]
